APPROVED DRUG PRODUCT: OCUMYCIN
Active Ingredient: BACITRACIN ZINC; POLYMYXIN B SULFATE
Strength: 500 UNITS/GM;10,000 UNITS/GM
Dosage Form/Route: OINTMENT;OPHTHALMIC
Application: A062430 | Product #001
Applicant: PHARMAFAIR INC
Approved: Apr 8, 1983 | RLD: No | RS: No | Type: DISCN